FAERS Safety Report 17248228 (Version 1)
Quarter: 2020Q1

REPORT INFORMATION
  Report Type: Spontaneous
  Country: IT (occurrence: IT)
  Receive Date: 20200108
  Receipt Date: 20200108
  Transmission Date: 20200409
  Serious: Yes (Other)
  Sender: FDA-Public Use
  Company Number: IT-MYLANLABS-2020M1001887

PATIENT
  Age: 76 Year
  Sex: Female
  Weight: 78 kg

DRUGS (4)
  1. AVASTIN [Suspect]
     Active Substance: BEVACIZUMAB
     Indication: RECTAL ADENOCARCINOMA
     Dosage: 548 MILLIGRAM, CYCLE
     Route: 042
     Dates: start: 20180419
  2. CAPECITABINE. [Suspect]
     Active Substance: CAPECITABINE
     Indication: RECTAL ADENOCARCINOMA
     Dosage: 2000 MILLIGRAM, CYCLE
     Route: 048
     Dates: start: 20180629
  3. LANSOX [Concomitant]
     Active Substance: LANSOPRAZOLE
     Dosage: UNK
  4. CARDICOR [Concomitant]
     Active Substance: BISOPROLOL
     Dosage: UNK

REACTIONS (2)
  - Rectal tenesmus [Recovering/Resolving]
  - Haematochezia [Recovering/Resolving]

NARRATIVE: CASE EVENT DATE: 20180830
